FAERS Safety Report 13233897 (Version 1)
Quarter: 2017Q1

REPORT INFORMATION
  Report Type: Spontaneous
  Country: US (occurrence: US)
  Receive Date: 20170214
  Receipt Date: 20170214
  Transmission Date: 20170428
  Serious: No
  Sender: FDA-Public Use
  Company Number: None

PATIENT
  Age: 60 Year
  Sex: Female

DRUGS (11)
  1. MAGNESIUM [Concomitant]
     Active Substance: MAGNESIUM
  2. CALCIUM [Concomitant]
     Active Substance: CALCIUM
  3. CAPECITABINE 500MG [Suspect]
     Active Substance: CAPECITABINE
     Indication: NEOPLASM MALIGNANT
     Dosage: 2000MG IN THE AM + 1500MG IN THE PM TWICE DAILY ORALLY
     Route: 048
     Dates: start: 20170117
  4. ATENOLOL. [Concomitant]
     Active Substance: ATENOLOL
  5. VITAMIN C [Concomitant]
     Active Substance: ASCORBIC ACID
  6. IBRANCE [Concomitant]
     Active Substance: PALBOCICLIB
  7. VITAMIN D [Concomitant]
     Active Substance: CHOLECALCIFEROL
  8. FASLODEX [Concomitant]
     Active Substance: FULVESTRANT
  9. FISH OIL [Concomitant]
     Active Substance: FISH OIL
  10. PRILOSEC [Concomitant]
     Active Substance: OMEPRAZOLE MAGNESIUM
  11. VITAMIN B1 [Concomitant]
     Active Substance: THIAMINE HYDROCHLORIDE

REACTIONS (1)
  - Pancreatitis [None]

NARRATIVE: CASE EVENT DATE: 201701
